FAERS Safety Report 9359974 (Version 1)
Quarter: 2013Q2

REPORT INFORMATION
  Report Type: Spontaneous
  Country: FR (occurrence: FR)
  Receive Date: 20130621
  Receipt Date: 20130621
  Transmission Date: 20140414
  Serious: Yes (Other)
  Sender: FDA-Public Use
  Company Number: FR-TEVA-410849ISR

PATIENT
  Sex: Female

DRUGS (1)
  1. COPAXONE [Suspect]
     Indication: MULTIPLE SCLEROSIS
     Dosage: FOR ABOUT 2 YEARS
     Dates: start: 201009

REACTIONS (5)
  - Injection site necrosis [Unknown]
  - Injection site extravasation [Unknown]
  - Embolia cutis medicamentosa [Unknown]
  - Injection site pain [Unknown]
  - Injection site discolouration [Unknown]
